FAERS Safety Report 4415346-0 (Version None)
Quarter: 2004Q2

REPORT INFORMATION
  Report Type: 
  Country: None (occurrence: None)
  Receive Date: 20040630
  Receipt Date: 20030519
  Transmission Date: 20050107
  Serious: Yes (Other)
  Sender: FDA-Public Use
  Company Number: 2003021340

PATIENT
  Age: 10 Year
  Sex: Male
  Weight: 31.7518 kg

DRUGS (2)
  1. ZOLOFT [Suspect]
     Indication: ANXIETY DISORDER
  2. METHYLPHENIDATE HCL [Suspect]
     Indication: ATTENTION DEFICIT/HYPERACTIVITY DISORDER
     Dates: end: 20030417

REACTIONS (2)
  - AGITATION [None]
  - CONVULSION [None]
